FAERS Safety Report 4648677-X (Version None)
Quarter: 2005Q2

REPORT INFORMATION
  Report Type: 
  Country: None (occurrence: None)
  Receive Date: 20050427
  Receipt Date: 20050414
  Transmission Date: 20051028
  Serious: Yes (Life-Threatening, Other)
  Sender: FDA-Public Use
  Company Number: HQWYE024614APR05

PATIENT
  Age: 58 Year
  Sex: Male

DRUGS (5)
  1. AMIODARONE HCL [Suspect]
     Dosage: 300 MG 1X PER 1 DAY, INTRAVENOUS
     Route: 042
     Dates: start: 20030611, end: 20030611
  2. DICLOFENAC SODIUM [Concomitant]
  3. CEFTRIAZONE (CEFTRIAXONE) [Concomitant]
  4. ERYTHROMYCIN [Concomitant]
  5. METRONIDAZOLE [Concomitant]

REACTIONS (3)
  - ANAPHYLACTOID REACTION [None]
  - BACK PAIN [None]
  - HYPERTENSION [None]
